FAERS Safety Report 7879748-2 (Version None)
Quarter: 2011Q4

REPORT INFORMATION
  Report Type: 
  Country: None (occurrence: None)
  Receive Date: 20111101
  Receipt Date: 20111028
  Transmission Date: 20120403
  Serious: Yes (Life-Threatening)
  Sender: FDA-Public Use
  Company Number: JP-ASTRAZENECA-2011SE65551

PATIENT
  Age: 3 Month

DRUGS (6)
  1. MEPTIN [Concomitant]
     Route: 055
  2. MUCODYNE [Concomitant]
     Route: 048
  3. ASVERIN [Concomitant]
     Route: 048
  4. PULMICORT [Suspect]
     Route: 055
     Dates: start: 20111001, end: 20111001
  5. ERYTHROCIN LACTOBIONATE [Concomitant]
     Route: 048
  6. ONON [Concomitant]
     Route: 048

REACTIONS (2)
  - DEHYDRATION [None]
  - PNEUMONIA [None]
